FAERS Safety Report 6639972-3 (Version None)
Quarter: 2010Q1

REPORT INFORMATION
  Report Type: 
  Country: None (occurrence: None)
  Receive Date: 20100318
  Receipt Date: 20100304
  Transmission Date: 20100710
  Serious: Yes (Other)
  Sender: FDA-Public Use
  Company Number: PHHY2010IE14082

PATIENT
  Sex: Female

DRUGS (1)
  1. CLOZARIL [Suspect]
     Indication: SCHIZOPHRENIA
     Dosage: UNK
     Dates: start: 20091029, end: 20100304

REACTIONS (9)
  - ABDOMINAL DISTENSION [None]
  - CONSTIPATION [None]
  - GASTRIC DISORDER [None]
  - GENERAL PHYSICAL CONDITION ABNORMAL [None]
  - NEUTROPHIL COUNT DECREASED [None]
  - PSYCHOTIC DISORDER [None]
  - VIRAL INFECTION [None]
  - VOMITING [None]
  - WHITE BLOOD CELL COUNT DECREASED [None]
